FAERS Safety Report 4321077-8 (Version None)
Quarter: 2004Q1

REPORT INFORMATION
  Report Type: 
  Country: None (occurrence: None)
  Receive Date: 20040322
  Receipt Date: 20040322
  Transmission Date: 20041129
  Serious: Yes (Other)
  Sender: FDA-Public Use
  Company Number: None

PATIENT
  Age: 30 Year
  Sex: Female
  Weight: 61.2356 kg

DRUGS (1)
  1. ORTHO CYCLEN-28 [Suspect]
     Indication: MENORRHAGIA
     Dosage: 1 TAB PO QD
     Route: 048
     Dates: start: 20031117, end: 20041117

REACTIONS (2)
  - MENORRHAGIA [None]
  - PHARMACEUTICAL PRODUCT COMPLAINT [None]
